FAERS Safety Report 10185160 (Version 1)
Quarter: 2014Q2

REPORT INFORMATION
  Report Type: Spontaneous
  Country: US (occurrence: US)
  Receive Date: 20140521
  Receipt Date: 20140521
  Transmission Date: 20141212
  Serious: Yes (Other)
  Sender: FDA-Public Use
  Company Number: US-RB-065957-14

PATIENT
  Age: 60 Year
  Sex: Female

DRUGS (1)
  1. MUCINEX FAST MAX SEVERE CONGESTION AND COUGH LIQUID [Suspect]
     Indication: COUGH
     Dosage: DATE PRODUCT LAST USED: 12/MAY/2014
     Route: 048
     Dates: start: 20140510

REACTIONS (1)
  - Epistaxis [Recovered/Resolved]
